FAERS Safety Report 9865411 (Version 1)
Quarter: 2014Q1

REPORT INFORMATION
  Report Type: Spontaneous
  Country: US (occurrence: US)
  Receive Date: 20140203
  Receipt Date: 20140203
  Transmission Date: 20141002
  Serious: Yes (Other)
  Sender: FDA-Public Use
  Company Number: PHEH2014US002136

PATIENT
  Age: 30 Year
  Sex: Female
  Weight: 72.5 kg

DRUGS (3)
  1. MYFORTIC [Suspect]
     Indication: AUTOIMMUNE HEPATITIS
     Dosage: 720 MG, BID
     Route: 048
     Dates: start: 201004
  2. MYFORTIC [Suspect]
     Indication: OFF LABEL USE
  3. PREDNISONE [Concomitant]
     Indication: AUTOIMMUNE HEPATITIS
     Dosage: VARIOUS
     Route: 048
     Dates: start: 200911, end: 201112

REACTIONS (4)
  - Adrenal insufficiency [Not Recovered/Not Resolved]
  - Malaise [Not Recovered/Not Resolved]
  - Asthenia [Not Recovered/Not Resolved]
  - Fall [Not Recovered/Not Resolved]
